FAERS Safety Report 4645045-1 (Version None)
Quarter: 2005Q2

REPORT INFORMATION
  Report Type: 
  Country: None (occurrence: None)
  Receive Date: 20050426
  Receipt Date: 20050310
  Transmission Date: 20051028
  Serious: Yes (Hospitalization)
  Sender: FDA-Public Use
  Company Number: DE-ROCHE-398163

PATIENT
  Age: 50 Year
  Sex: Male
  Weight: 80 kg

DRUGS (4)
  1. RIBAVIRIN [Suspect]
     Route: 048
     Dates: start: 20030801
  2. PEG-INTERFERON ALFA 2A (RO 25-8310) [Suspect]
     Route: 058
     Dates: start: 20030801
  3. GLYBURIDE [Concomitant]
     Dosage: TWO DOSES IN THE MORNING, ONE AT NIGHT.
  4. ZOCOR [Concomitant]
     Dosage: TAKEN AT NIGHT.

REACTIONS (3)
  - ARTERIOSCLEROSIS [None]
  - CARDIOMEGALY [None]
  - EMBOLIC STROKE [None]
